FAERS Safety Report 4448636-6 (Version None)
Quarter: 2004Q3

REPORT INFORMATION
  Report Type: 
  Country: None (occurrence: None)
  Receive Date: 20040909
  Receipt Date: 20040909
  Transmission Date: 20050211
  Serious: Yes (Hospitalization)
  Sender: FDA-Public Use
  Company Number: None

PATIENT
  Sex: Male
  Weight: 58.9676 kg

DRUGS (6)
  1. CISPLATIN [Suspect]
     Indication: DISEASE RECURRENCE
     Dosage: 50 MG WEEKS 1,2,4,5 INTRAVENOUS
     Route: 042
     Dates: start: 20040513, end: 20040805
  2. CISPLATIN [Suspect]
     Indication: METASTASES TO LUNG
     Dosage: 50 MG WEEKS 1,2,4,5 INTRAVENOUS
     Route: 042
     Dates: start: 20040513, end: 20040805
  3. CISPLATIN [Suspect]
     Indication: TONGUE NEOPLASM MALIGNANT STAGE UNSPECIFIED
     Dosage: 50 MG WEEKS 1,2,4,5 INTRAVENOUS
     Route: 042
     Dates: start: 20040513, end: 20040805
  4. IRENOTECAN [Suspect]
     Indication: DISEASE RECURRENCE
     Dosage: 84 MG WEEKS 1,2,4,5 INTRAVENOUS
     Route: 042
     Dates: start: 20040513, end: 20040805
  5. IRENOTECAN [Suspect]
     Indication: METASTASES TO LUNG
     Dosage: 84 MG WEEKS 1,2,4,5 INTRAVENOUS
     Route: 042
     Dates: start: 20040513, end: 20040805
  6. IRENOTECAN [Suspect]
     Indication: TONGUE NEOPLASM MALIGNANT STAGE UNSPECIFIED
     Dosage: 84 MG WEEKS 1,2,4,5 INTRAVENOUS
     Route: 042
     Dates: start: 20040513, end: 20040805

REACTIONS (4)
  - ANAEMIA [None]
  - ANOREXIA [None]
  - DRUG TOXICITY [None]
  - DYSPHAGIA [None]
